FAERS Safety Report 10788998 (Version 1)
Quarter: 2015Q1

REPORT INFORMATION
  Report Type: Report from Study
  Country: DE (occurrence: DE)
  Receive Date: 20150212
  Receipt Date: 20150212
  Transmission Date: 20150721
  Serious: Yes (Hospitalization, Other)
  Sender: FDA-Public Use
  Company Number: DE-ABBVIE-15K-062-1344243-00

PATIENT
  Sex: Female

DRUGS (3)
  1. LEFLUNOMIDE. [Concomitant]
     Active Substance: LEFLUNOMIDE
     Indication: PRODUCT USED FOR UNKNOWN INDICATION
  2. HUMIRA [Suspect]
     Active Substance: ADALIMUMAB
     Indication: RHEUMATOID ARTHRITIS
     Route: 058
     Dates: start: 201211, end: 201311
  3. METHOTREXATE [Suspect]
     Active Substance: METHOTREXATE
     Indication: PRODUCT USED FOR UNKNOWN INDICATION
     Dosage: 10-15 MG
     Route: 065

REACTIONS (9)
  - Post procedural haemorrhage [Not Recovered/Not Resolved]
  - Colitis ulcerative [Recovered/Resolved]
  - Escherichia urinary tract infection [Recovered/Resolved]
  - Joint dislocation [Recovered/Resolved]
  - Postoperative wound infection [Recovered/Resolved]
  - Anaemia postoperative [Not Recovered/Not Resolved]
  - Diverticulum intestinal [Recovered/Resolved]
  - Femoral neck fracture [Recovered/Resolved]
  - Staphylococcal infection [Recovered/Resolved]

NARRATIVE: CASE EVENT DATE: 20131031
